FAERS Safety Report 25552497 (Version 1)
Quarter: 2025Q3

REPORT INFORMATION
  Report Type: Spontaneous
  Country: PH (occurrence: PH)
  Receive Date: 20250715
  Receipt Date: 20250715
  Transmission Date: 20251021
  Serious: Yes (Other)
  Sender: ALEXION PHARMACEUTICALS
  Company Number: PH-AstraZeneca-CH-00907107A

PATIENT
  Sex: Male

DRUGS (2)
  1. LYNPARZA [Suspect]
     Active Substance: OLAPARIB
     Indication: Hormone-refractory prostate cancer
     Dosage: 150 MILLIGRAM, QID
     Dates: start: 20250501
  2. LYNPARZA [Suspect]
     Active Substance: OLAPARIB
     Indication: Prostate cancer metastatic

REACTIONS (1)
  - Jaundice [Unknown]
